FAERS Safety Report 17046526 (Version 4)
Quarter: 2021Q3

REPORT INFORMATION
  Report Type: Spontaneous
  Country: FR (occurrence: FR)
  Receive Date: 20191119
  Receipt Date: 20210729
  Transmission Date: 20211014
  Serious: Yes (Hospitalization, Disabling, Other)
  Sender: FDA-Public Use
  Company Number: FR-TEVA-2019-FR-1139316

PATIENT
  Age: 42 Year
  Sex: Female

DRUGS (7)
  1. ESTREVA [Suspect]
     Active Substance: ESTRADIOL
     Route: 048
     Dates: start: 1994, end: 1998
  2. ANDROCUR [Suspect]
     Active Substance: CYPROTERONE ACETATE
     Dosage: 25 MILLIGRAM DAILY;
     Route: 048
     Dates: start: 2007, end: 2012
  3. ANDROCUR [Suspect]
     Active Substance: CYPROTERONE ACETATE
     Indication: CONTRACEPTION
     Dosage: 25 MILLIGRAM DAILY;
     Route: 048
     Dates: start: 1999, end: 2005
  4. DIANE (CYPROTERONE ACETATE\ETHINYL ESTRADIOL) [Suspect]
     Active Substance: CYPROTERONE ACETATE\ETHINYL ESTRADIOL
     Indication: ACNE
     Route: 048
     Dates: start: 199403, end: 1994
  5. ESTREVA [Suspect]
     Active Substance: ESTRADIOL
     Route: 048
     Dates: start: 1999, end: 2005
  6. ESTREVA [Suspect]
     Active Substance: ESTRADIOL
     Route: 065
     Dates: start: 2007, end: 2012
  7. ANDROCUR [Suspect]
     Active Substance: CYPROTERONE ACETATE
     Indication: ACNE
     Dosage: 25 MILLIGRAM DAILY;
     Route: 048
     Dates: start: 1994, end: 1998

REACTIONS (32)
  - Epilepsy [Unknown]
  - Fatigue [Unknown]
  - Balance disorder [Unknown]
  - Ageusia [Unknown]
  - Meningioma [Unknown]
  - Visual impairment [Unknown]
  - Blindness [Unknown]
  - Road traffic accident [Unknown]
  - Procedural pain [Unknown]
  - Pelvic pain [Unknown]
  - Amnesia [Unknown]
  - Aggression [Unknown]
  - Head deformity [Unknown]
  - Behaviour disorder [Unknown]
  - Off label use [Unknown]
  - Agnosia [Unknown]
  - Cognitive disorder [Unknown]
  - Asthenia [Unknown]
  - Depression [Unknown]
  - Memory impairment [Unknown]
  - Disturbance in attention [Unknown]
  - Mood altered [Unknown]
  - Clinomania [Unknown]
  - Weight increased [Unknown]
  - Breast pain [Unknown]
  - Status epilepticus [Unknown]
  - Fibroadenoma of breast [Unknown]
  - Pollakiuria [Unknown]
  - Anxiety [Unknown]
  - Migraine [Unknown]
  - Anosmia [Unknown]
  - Product use in unapproved indication [Unknown]

NARRATIVE: CASE EVENT DATE: 199403
